FAERS Safety Report 11871639 (Version 1)
Quarter: 2015Q4

REPORT INFORMATION
  Report Type: Spontaneous
  Country: IT (occurrence: IT)
  Receive Date: 20151228
  Receipt Date: 20151228
  Transmission Date: 20160305
  Serious: Yes (Hospitalization)
  Sender: FDA-Public Use
  Company Number: IT-TEVA-620580ACC

PATIENT
  Age: 88 Year
  Sex: Female

DRUGS (4)
  1. NOVOMIX - 100 U/ML SOSPENSIONE INIETTABILE [Suspect]
     Active Substance: INSULIN ASPART
     Indication: DIABETES MELLITUS
     Dosage: 3 DOSAGE FORMS DAILY;
     Route: 058
  2. METFORMIN HYDROCHLORIDE. [Suspect]
     Active Substance: METFORMIN HYDROCHLORIDE
     Indication: DIABETES MELLITUS
     Dosage: DAILY
     Route: 048
  3. TACHIDOL - 500 MG/30 MG COMPRESSE RIVESTITTE CON FILM [Concomitant]
     Indication: PRODUCT USED FOR UNKNOWN INDICATION
  4. ALGIX - 30 MG COMPRESSE RIVESTITE CON FILM [Concomitant]
     Indication: PRODUCT USED FOR UNKNOWN INDICATION

REACTIONS (2)
  - Syncope [Recovering/Resolving]
  - Hypoglycaemia [Recovering/Resolving]

NARRATIVE: CASE EVENT DATE: 20140820
